FAERS Safety Report 11478534 (Version 1)
Quarter: 2015Q3

REPORT INFORMATION
  Report Type: Spontaneous
  Country: US (occurrence: US)
  Receive Date: 20150909
  Receipt Date: 20150909
  Transmission Date: 20151125
  Serious: No
  Sender: FDA-Public Use
  Company Number: US-JAZZ-2015-US-009782

PATIENT
  Age: 33 Year
  Sex: Female
  Weight: 68.27 kg

DRUGS (8)
  1. EFFEXOR XR [Concomitant]
     Active Substance: VENLAFAXINE HYDROCHLORIDE
     Indication: SOMNAMBULISM
  2. NUVIGIL [Concomitant]
     Active Substance: ARMODAFINIL
     Indication: PRODUCT USED FOR UNKNOWN INDICATION
     Dosage: UNK
     Dates: start: 20010101
  3. XYREM [Suspect]
     Active Substance: SODIUM OXYBATE
     Dosage: 3.75 G, BID
     Route: 048
     Dates: start: 20150623, end: 201506
  4. XYREM [Suspect]
     Active Substance: SODIUM OXYBATE
     Dosage: 3 G, BID
     Route: 048
     Dates: start: 201506
  5. XYREM [Suspect]
     Active Substance: SODIUM OXYBATE
     Indication: SOMNOLENCE
     Dosage: 2.25 G, BID
     Route: 048
     Dates: start: 201506, end: 201506
  6. SINGULAIR [Concomitant]
     Active Substance: MONTELUKAST SODIUM
     Indication: ALLERGIC COUGH
     Dosage: UNK
     Dates: start: 20010101
  7. XYREM [Suspect]
     Active Substance: SODIUM OXYBATE
     Indication: NARCOLEPSY
     Dosage: 3 G, BID
     Route: 048
     Dates: start: 201506, end: 20150622
  8. EFFEXOR XR [Concomitant]
     Active Substance: VENLAFAXINE HYDROCHLORIDE
     Indication: SLEEP TALKING
     Dosage: UNK
     Dates: start: 20010101

REACTIONS (1)
  - Feeling abnormal [Recovered/Resolved]

NARRATIVE: CASE EVENT DATE: 20150624
